FAERS Safety Report 9761201 (Version 2)
Quarter: 2014Q2

REPORT INFORMATION
  Report Type: Spontaneous
  Country: US (occurrence: US)
  Receive Date: 20131216
  Receipt Date: 20140610
  Transmission Date: 20141212
  Serious: Yes (Other)
  Sender: FDA-Public Use
  Company Number: US-PFIZER INC-2013358448

PATIENT
  Age: 65 Year
  Sex: Female

DRUGS (2)
  1. LIPITOR [Suspect]
     Indication: LOW DENSITY LIPOPROTEIN INCREASED
     Dosage: 10 MG, 1X/DAY (1 TABLET DAILY)
     Route: 048
     Dates: start: 20020731, end: 20100225
  2. LIPITOR [Suspect]
     Indication: CARDIOVASCULAR EVENT PROPHYLAXIS

REACTIONS (7)
  - Type 2 diabetes mellitus [Not Recovered/Not Resolved]
  - Diabetic eye disease [Unknown]
  - Glaucoma [Unknown]
  - Retinal detachment [Unknown]
  - Age-related macular degeneration [Unknown]
  - Cataract nuclear [Unknown]
  - Strabismus [Unknown]
